FAERS Safety Report 8891452 (Version 1)
Quarter: 2012Q4

REPORT INFORMATION
  Report Type: 
  Country: US (occurrence: None)
  Receive Date: 20121031
  Receipt Date: 20121031
  Transmission Date: 20130627
  Serious: Yes (Death)
  Sender: FDA-Public Use
  Company Number: 2012PL000183

PATIENT
  Age: 76 Year
  Sex: Male
  Weight: 88 kg

DRUGS (13)
  1. IMURAN [Suspect]
     Indication: DRUG USE FOR UNKNOWN INDICATION
     Dosage: 50 MG/QD;PO
     Route: 048
     Dates: start: 20120531
  2. RAPAFLO [Suspect]
     Indication: BENIGN PROSTATIC HYPERPLASIA
     Dosage: 8 MG;QD;PO
     Route: 048
     Dates: start: 20120621, end: 20120729
  3. LOSARTAN POTASSIUM [Suspect]
     Indication: DRUG USE FOR UNKNOWN INDICATION
     Dosage: 100 MG; QD; PO
     Route: 048
     Dates: start: 20120531
  4. PREDNISONE [Suspect]
     Indication: DRUG USE FOR UNKNOWN INDICATION
     Dosage: 10 MG; QD; PO
     Route: 048
     Dates: start: 20120531
  5. LOVASTATIN [Suspect]
     Indication: DRUG USE FOR UNKNOWN INDICATION
     Dosage: 40 MG; BID; PO
     Route: 048
     Dates: start: 20100831
  6. METFORMIN HYDROCHLORIDE [Suspect]
     Indication: DRUG USE FOR UNKNOWN INDICATION
     Dosage: 1000 MG; BID; PO
     Route: 048
     Dates: start: 20100831
  7. METOPROLOL [Suspect]
     Indication: DRUG USE FOR UNKNOWN INDICATION
     Dosage: 50 MG; BID; PO
     Route: 048
     Dates: start: 20120221
  8. SALBUTAMOL [Suspect]
     Indication: DRUG USE FOR UNKNOWN INDICATION
     Dosage: 2 PUFFS; PRN; INH
     Route: 055
     Dates: start: 20120531
  9. ADVAIR [Suspect]
     Indication: DRUG USE FOR UNKNOWN INDICATION
     Dosage: 500 MCG; QD; INH
     Route: 055
     Dates: start: 20120531
  10. ASPIRIN [Suspect]
     Indication: DRUG USE FOR UNKNOWN INDICATION
     Dosage: 325 MG; QD; PO
     Route: 048
     Dates: start: 20120531
  11. HUMALOG MIX50/50 [Suspect]
     Indication: DRUG USE FOR UNKNOWN INDICATION
     Dosage: 35 U;  BID;  SC
     Route: 058
     Dates: start: 20120621
  12. FINASTERIDE [Suspect]
     Indication: DRUG USE FOR UNKNOWN INDICATION
  13. XOPENEX [Suspect]
     Indication: DRUG USE FOR UNKNOWN INDICATION
     Dosage: 1 AMP; QID; INH
     Route: 055
     Dates: start: 20120705

REACTIONS (3)
  - Respiratory failure [None]
  - Hypoxia [None]
  - Cardiac arrest [None]
